FAERS Safety Report 21831897 (Version 1)
Quarter: 2023Q1

REPORT INFORMATION
  Report Type: Spontaneous
  Country: US (occurrence: None)
  Receive Date: 20230106
  Receipt Date: 20230106
  Transmission Date: 20230417
  Serious: Yes (Other)
  Sender: FDA-Public Use
  Company Number: None

PATIENT
  Age: 17 Year
  Sex: Female
  Weight: 78.47 kg

DRUGS (1)
  1. CHOLESTYRAMINE [Suspect]
     Active Substance: CHOLESTYRAMINE
     Dosage: OTHER QUANTITY : 1 PACKET;?FREQUENCY : DAILY;?
     Route: 048
     Dates: start: 20230102, end: 20230105

REACTIONS (3)
  - Nausea [None]
  - Product taste abnormal [None]
  - Drug intolerance [None]

NARRATIVE: CASE EVENT DATE: 20230103
